FAERS Safety Report 4879456-6 (Version None)
Quarter: 2005Q4

REPORT INFORMATION
  Report Type: 
  Country: None (occurrence: None)
  Receive Date: 20051209
  Receipt Date: 20050805
  Transmission Date: 20060501
  Serious: Yes (Death)
  Sender: FDA-Public Use
  Company Number: USA-2002-0000137

PATIENT
  Age: 42 Year
  Sex: Female
  Weight: 99.8 kg

DRUGS (24)
  1. OXYCONTIN [Suspect]
     Indication: PAIN
     Dosage: 20 MG, BID, ORAL
     Route: 048
     Dates: start: 19990910, end: 20000403
  2. MEPROBAMATE [Suspect]
  3. SOMA [Suspect]
     Dosage: BID, ORAL
     Route: 048
  4. CALAN [Suspect]
     Dosage: 240 MG , BID, ORAL
     Route: 048
  5. VIOXX [Concomitant]
  6. PERCOCET [Concomitant]
  7. PLACIDYL [Concomitant]
  8. XANAX [Concomitant]
  9. CLONIDINE [Concomitant]
  10. MAXZIDE [Concomitant]
  11. LIPITOR [Concomitant]
  12. XENICAL [Concomitant]
  13. KEFLEX [Concomitant]
  14. LEVAQUIN [Concomitant]
  15. NYSTATIN [Concomitant]
  16. LIDOCAINE HCL VISCOUS [Concomitant]
  17. PROVENTIL TABELT [Concomitant]
  18. LORCET-HD [Concomitant]
  19. ROXICODONE [Concomitant]
  20. DIPROLENE [Concomitant]
  21. TYLENOL (CAPLET) [Concomitant]
  22. BIAXIN [Concomitant]
  23. ROBUTISSIN-DM [Concomitant]
  24. NEURONTIN [Concomitant]

REACTIONS (9)
  - ASTHMA [None]
  - BRONCHITIS [None]
  - DRUG INEFFECTIVE [None]
  - FALL [None]
  - FRACTURED COCCYX [None]
  - GLOSSITIS [None]
  - HYPOACUSIS [None]
  - OTITIS MEDIA [None]
  - OVERDOSE [None]
